FAERS Safety Report 18889463 (Version 2)
Quarter: 2021Q2

REPORT INFORMATION
  Report Type: Report from Study
  Country: US (occurrence: US)
  Receive Date: 20210213
  Receipt Date: 20210402
  Transmission Date: 20210717
  Serious: No
  Sender: FDA-Public Use
  Company Number: NVSC2021US026905

PATIENT
  Age: 68 Year
  Sex: Female
  Weight: 83.01 kg

DRUGS (1)
  1. COSENTYX [Suspect]
     Active Substance: SECUKINUMAB
     Indication: PRODUCT USED FOR UNKNOWN INDICATION
     Dosage: UNK
     Route: 065

REACTIONS (6)
  - Arthralgia [Unknown]
  - Scab [Unknown]
  - Trichorrhexis [Unknown]
  - Back pain [Unknown]
  - Product dose omission issue [Unknown]
  - Neck pain [Unknown]

NARRATIVE: CASE EVENT DATE: 202012
